FAERS Safety Report 5627642-X (Version None)
Quarter: 2008Q1

REPORT INFORMATION
  Report Type: 
  Country: None (occurrence: None)
  Receive Date: 20080214
  Receipt Date: 20080214
  Transmission Date: 20080703
  Serious: Yes (Hospitalization)
  Sender: FDA-Public Use
  Company Number: None

PATIENT
  Sex: Female
  Weight: 81.1939 kg

DRUGS (9)
  1. NOREPHINEPHRINE [Suspect]
     Indication: HYPOTENSION
     Dosage: 0.6 MCG/KG/MIN   IV
     Route: 042
     Dates: start: 20080109, end: 20080112
  2. VASOPRESSIN [Suspect]
     Indication: HYPOTENSION
     Dosage: 0.4 UNITS/MIN   IV
     Route: 042
     Dates: start: 20080110, end: 20080112
  3. PIPERACILLIN AND TAZOBACTAM [Concomitant]
  4. CIPROFLOXACIN [Concomitant]
  5. FLUCONAZOLE [Concomitant]
  6. HYDROCORTISONE [Concomitant]
  7. VECURONIUM BROMIDE [Concomitant]
  8. ARGATROBAN [Concomitant]
  9. TYLENOL RECTAL SUPPOSITORY [Concomitant]

REACTIONS (7)
  - CYANOSIS [None]
  - GANGRENE [None]
  - HEPARIN-INDUCED THROMBOCYTOPENIA [None]
  - ISCHAEMIA [None]
  - PULSE ABSENT [None]
  - SURGERY [None]
  - THROMBOSIS [None]
